FAERS Safety Report 16123886 (Version 2)
Quarter: 2019Q2

REPORT INFORMATION
  Report Type: Spontaneous
  Country: FR (occurrence: FR)
  Receive Date: 20190327
  Receipt Date: 20190403
  Transmission Date: 20190711
  Serious: Yes (Hospitalization)
  Sender: FDA-Public Use
  Company Number: FR-ANIPHARMA-2019-FR-000047

PATIENT
  Age: 75 Year
  Sex: Female

DRUGS (9)
  1. KEPPRA [Concomitant]
     Active Substance: LEVETIRACETAM
     Dosage: UNK
     Route: 065
  2. TAHOR [Suspect]
     Active Substance: ATORVASTATIN CALCIUM
     Dosage: 1 DF DAILY
     Route: 048
     Dates: start: 201612
  3. PANTOPRAZOLE [Concomitant]
     Active Substance: PANTOPRAZOLE
     Dosage: UNK
     Route: 065
  4. LEVOTHYROX [Concomitant]
     Active Substance: LEVOTHYROXINE
     Dosage: UNK
     Route: 065
  5. PAROXETINE. [Concomitant]
     Active Substance: PAROXETINE
     Dosage: UNK
     Route: 065
  6. KARDEGIC [Concomitant]
     Active Substance: ASPIRIN DL-LYSINE
     Dosage: UNK
     Route: 061
  7. ARIMIDEX [Suspect]
     Active Substance: ANASTROZOLE
     Indication: BREAST CANCER
     Dosage: 1 DF DAILY
     Route: 048
     Dates: start: 20190120, end: 20190228
  8. BISOPROLOL [Concomitant]
     Active Substance: BISOPROLOL
     Dosage: UNK
     Route: 065
  9. DOLIPRANE [Concomitant]
     Active Substance: ACETAMINOPHEN
     Dosage: UNK
     Route: 065

REACTIONS (1)
  - Interstitial lung disease [Recovering/Resolving]

NARRATIVE: CASE EVENT DATE: 201902
